FAERS Safety Report 16788035 (Version 3)
Quarter: 2020Q2

REPORT INFORMATION
  Report Type: Spontaneous
  Country: GB (occurrence: GB)
  Receive Date: 20190909
  Receipt Date: 20200527
  Transmission Date: 20200713
  Serious: Yes (Hospitalization, Other)
  Sender: FDA-Public Use
  Company Number: PHHY2019GB205165

PATIENT
  Age: 66 Year
  Sex: Female

DRUGS (37)
  1. DOCETAXEL. [Suspect]
     Active Substance: DOCETAXEL
     Indication: HER2 POSITIVE BREAST CANCER
     Dosage: 100 MG, TID
     Route: 042
     Dates: start: 20150313, end: 20150415
  2. PARACETAMOL [Concomitant]
     Active Substance: ACETAMINOPHEN
     Indication: PRODUCT USED FOR UNKNOWN INDICATION
     Dosage: 4 G, QD
     Route: 048
  3. TRASTUZUMAB. [Suspect]
     Active Substance: TRASTUZUMAB
     Dosage: 462 MG, QW3 (THERAPY DISCONTINUED DUE TO DISEASE PROGRESSION)
     Route: 042
     Dates: start: 20150730, end: 20151205
  4. TRASTUZUMAB EMTANSINE [Suspect]
     Active Substance: ADO-TRASTUZUMAB EMTANSINE
     Indication: HER2 POSITIVE BREAST CANCER
     Dosage: 170 MG, TIW
     Route: 042
     Dates: start: 20160114, end: 20160225
  5. SALBUTAMOL [Concomitant]
     Active Substance: ALBUTEROL
     Dosage: 50 UG, QD
     Route: 065
  6. QVAR [Concomitant]
     Active Substance: BECLOMETHASONE DIPROPIONATE
     Route: 065
     Dates: end: 2016
  7. CODEIN [Concomitant]
     Active Substance: CODEINE
     Indication: PRODUCT USED FOR UNKNOWN INDICATION
     Dosage: 64 MG, QD
     Route: 048
  8. TRASTUZUMAB. [Suspect]
     Active Substance: TRASTUZUMAB
     Dosage: 472.5 MG, QW3 (DOSE ALTERED FOR WEIGHT FLUCTUATION)
     Route: 042
     Dates: start: 20150326, end: 20150710
  9. RANITIDINE. [Concomitant]
     Active Substance: RANITIDINE
     Indication: PRODUCT USED FOR UNKNOWN INDICATION
     Dosage: 150 MG, UNK
     Route: 048
  10. DEXAMETHASONE. [Concomitant]
     Active Substance: DEXAMETHASONE
     Indication: NAUSEA
     Dosage: 8 MG, TID
     Route: 048
     Dates: start: 20150304, end: 20150616
  11. DEXAMETHASONE. [Concomitant]
     Active Substance: DEXAMETHASONE
     Dosage: UNK
     Route: 065
  12. PREDNISOLONE. [Concomitant]
     Active Substance: PREDNISOLONE
     Dosage: 500 MG
     Route: 048
     Dates: start: 20150811, end: 20150818
  13. AMOXICILLIN. [Concomitant]
     Active Substance: AMOXICILLIN
     Indication: DYSPNOEA
     Dosage: UNK
     Route: 048
     Dates: end: 201510
  14. FLUCONAZOLE. [Concomitant]
     Active Substance: FLUCONAZOLE
     Indication: FUNGAL INFECTION
     Dosage: 50 MG, TIW
     Route: 048
     Dates: start: 20150304, end: 20150603
  15. SALMETEROL [Concomitant]
     Active Substance: SALMETEROL
     Route: 065
  16. LEVOFLOXACIN. [Concomitant]
     Active Substance: LEVOFLOXACIN
     Indication: INFECTION
     Dosage: 500 MG, TID
     Route: 048
     Dates: start: 20150304, end: 20150605
  17. TRASTUZUMAB. [Suspect]
     Active Substance: TRASTUZUMAB
     Indication: BREAST CANCER METASTATIC
     Dosage: 598 MG, UNK
     Route: 042
     Dates: start: 20150214, end: 20150214
  18. LOPERAMIDE [Concomitant]
     Active Substance: LOPERAMIDE
     Indication: DIARRHOEA
     Dosage: 2 MG, UNK
     Route: 048
  19. PREDNISOLONE. [Concomitant]
     Active Substance: PREDNISOLONE
     Indication: DYSPNOEA
     Dosage: 1500 MG, QD
     Route: 048
     Dates: start: 20150811, end: 20150818
  20. RAMIPRIL. [Concomitant]
     Active Substance: RAMIPRIL
     Indication: PRODUCT USED FOR UNKNOWN INDICATION
     Dosage: 10 MG, UNK
     Route: 048
  21. DOCETAXEL. [Suspect]
     Active Substance: DOCETAXEL
     Dosage: NO OF CYCLES RECEIVED: 6PLANNED NUMBE OF CYCLES COMPLETED
     Route: 042
     Dates: start: 20150416, end: 20150520
  22. DENOSUMAB [Concomitant]
     Active Substance: DENOSUMAB
     Indication: PRODUCT USED FOR UNKNOWN INDICATION
     Dosage: 120 MG, QD
     Route: 058
     Dates: start: 20150908, end: 20161117
  23. QVAR [Concomitant]
     Active Substance: BECLOMETHASONE DIPROPIONATE
     Indication: PRODUCT USED FOR UNKNOWN INDICATION
     Dosage: 400 UG, QD
     Route: 065
     Dates: end: 2016
  24. AMOXICILLIN. [Concomitant]
     Active Substance: AMOXICILLIN
     Indication: UPPER RESPIRATORY TRACT INFECTION
     Route: 048
     Dates: end: 201510
  25. SALMETEROL [Concomitant]
     Active Substance: SALMETEROL
     Indication: PRODUCT USED FOR UNKNOWN INDICATION
     Dosage: 100 UG, QD
     Route: 065
  26. LEVOFLOXACIN. [Concomitant]
     Active Substance: LEVOFLOXACIN
     Dosage: 500 MG
     Route: 048
     Dates: start: 20150304, end: 20150605
  27. TRASTUZUMAB. [Suspect]
     Active Substance: TRASTUZUMAB
     Dosage: 462 MG, TID
     Route: 042
     Dates: start: 20150305, end: 20150305
  28. SALBUTAMOL [Concomitant]
     Active Substance: ALBUTEROL
     Indication: PRODUCT USED FOR UNKNOWN INDICATION
     Dosage: FORM: INHALANT
     Route: 013
  29. ALLOPURINOL. [Concomitant]
     Active Substance: ALLOPURINOL
     Indication: PRODUCT USED FOR UNKNOWN INDICATION
     Dosage: 100 MG, UNK
     Route: 048
  30. CODEIN [Concomitant]
     Active Substance: CODEINE
     Dosage: 16 MG
     Route: 048
  31. TRASTUZUMAB. [Suspect]
     Active Substance: TRASTUZUMAB
     Dosage: DOSE ALTERED FOR WEIGHT FLUCTUATION
     Route: 042
     Dates: start: 20150326, end: 20150710
  32. TRASTUZUMAB. [Suspect]
     Active Substance: TRASTUZUMAB
     Dosage: NO OF CYCLE RECEIVED: 5
     Route: 065
     Dates: start: 20150214, end: 20150214
  33. TRASTUZUMAB EMTANSINE [Suspect]
     Active Substance: ADO-TRASTUZUMAB EMTANSINE
     Indication: HER2 POSITIVE BREAST CANCER
     Dosage: 170 MG, TID
     Route: 042
     Dates: start: 20160114, end: 20160225
  34. PERTUZUMAB. [Suspect]
     Active Substance: PERTUZUMAB
     Indication: HER2 POSITIVE BREAST CANCER
     Dosage: LOADING DOSENO OF CYCLE RECEIVED : 5
     Route: 042
     Dates: start: 20150213, end: 20150213
  35. PERTUZUMAB. [Suspect]
     Active Substance: PERTUZUMAB
     Indication: HER2 POSITIVE BREAST CANCER
     Dosage: 420 MG, QW3 (THERAPY DISCONTINUED DUE TO DISEASE PROGRESSION)
     Route: 042
     Dates: start: 20150305, end: 20151217
  36. PERTUZUMAB. [Suspect]
     Active Substance: PERTUZUMAB
     Dosage: THERAPY DISCONTINUED DUE TO DISEASE PROGRESSION
     Route: 042
     Dates: start: 20150305, end: 20151217
  37. PARACETAMOL [Concomitant]
     Active Substance: ACETAMINOPHEN
     Dosage: 1 G
     Route: 048

REACTIONS (4)
  - Gamma-glutamyltransferase increased [Recovered/Resolved]
  - Jaundice [Recovered/Resolved with Sequelae]
  - Blood alkaline phosphatase increased [Recovered/Resolved]
  - Alanine aminotransferase increased [Recovered/Resolved]

NARRATIVE: CASE EVENT DATE: 20160223
